FAERS Safety Report 5386079-1 (Version None)
Quarter: 2007Q3

REPORT INFORMATION
  Report Type: 
  Country: None (occurrence: None)
  Receive Date: 20070710
  Receipt Date: 20070625
  Transmission Date: 20080115
  Serious: Yes (Other)
  Sender: FDA-Public Use
  Company Number: 2007RR-08404

PATIENT
  Age: 16 Year
  Sex: Female

DRUGS (2)
  1. DICLOFENAC SODIUM [Suspect]
  2. CLINDAMYCIN HCL [Suspect]

REACTIONS (2)
  - LARGE INTESTINE PERFORATION [None]
  - PERITONEAL INFECTION [None]
